FAERS Safety Report 13939388 (Version 1)
Quarter: 2017Q3

REPORT INFORMATION
  Report Type: Report from Study
  Country: CO (occurrence: CO)
  Receive Date: 20170906
  Receipt Date: 20170906
  Transmission Date: 20171127
  Serious: Yes (Hospitalization, Other)
  Sender: FDA-Public Use
  Company Number: CO-ROCHE-1987726

PATIENT
  Age: 47 Year
  Sex: Male
  Weight: 58 kg

DRUGS (2)
  1. CELLCEPT [Suspect]
     Active Substance: MYCOPHENOLATE MOFETIL\MYCOPHENOLATE MOFETIL HYDROCHLORIDE
     Indication: LIVER TRANSPLANT
     Route: 048
     Dates: start: 20150821
  2. VALIXA [Suspect]
     Active Substance: VALGANCICLOVIR
     Indication: ANTIVIRAL PROPHYLAXIS
     Route: 048
     Dates: start: 20150821, end: 20150830

REACTIONS (6)
  - Thrombocytopenia [Recovering/Resolving]
  - Biliary tract disorder [Not Recovered/Not Resolved]
  - Dysphonia [Recovering/Resolving]
  - Hepatitis C [Recovered/Resolved with Sequelae]
  - Anaemia [Recovering/Resolving]
  - Transplant rejection [Recovered/Resolved with Sequelae]

NARRATIVE: CASE EVENT DATE: 201606
